FAERS Safety Report 23412372 (Version 1)
Quarter: 2024Q1

REPORT INFORMATION
  Report Type: Spontaneous
  Country: US (occurrence: US)
  Receive Date: 20240117
  Receipt Date: 20240117
  Transmission Date: 20240410
  Serious: No
  Sender: FDA-Public Use
  Company Number: US-NOVOPROD-1090491

PATIENT

DRUGS (1)
  1. OZEMPIC [Suspect]
     Active Substance: SEMAGLUTIDE
     Indication: Type 2 diabetes mellitus
     Dosage: UNK
     Route: 058

REACTIONS (4)
  - Pruritus [Not Recovered/Not Resolved]
  - Feeling abnormal [Unknown]
  - Dyspepsia [Not Recovered/Not Resolved]
  - Nausea [Recovered/Resolved]
